FAERS Safety Report 8617334-7 (Version None)
Quarter: 2012Q3

REPORT INFORMATION
  Report Type: 
  Country: None (occurrence: None)
  Receive Date: 20120823
  Receipt Date: 20120817
  Transmission Date: 20120928
  Serious: Yes (Other)
  Sender: FDA-Public Use
  Company Number: PH-009507513-1208PHL006656

PATIENT

DRUGS (1)
  1. PREGNYL [Suspect]
     Dosage: UNK
     Dates: start: 20120803

REACTIONS (3)
  - ANAPHYLACTIC REACTION [None]
  - ASTHMA [None]
  - PETECHIAE [None]
